FAERS Safety Report 8588176-6 (Version None)
Quarter: 2012Q3

REPORT INFORMATION
  Report Type: 
  Country: None (occurrence: None)
  Receive Date: 20120731
  Receipt Date: 20120719
  Transmission Date: 20120928
  Serious: Yes (Other)
  Sender: FDA-Public Use
  Company Number: JPI-P-022931

PATIENT
  Age: 41 Year
  Sex: Male

DRUGS (6)
  1. VALPROIC ACID [Suspect]
     Indication: PRODUCT USED FOR UNKNOWN INDICATION
     Dates: end: 20120601
  2. PAIN MEDS [Concomitant]
  3. SEIZURE MEDS [Concomitant]
  4. XYREM [Suspect]
     Indication: SLEEP DISORDER
     Dosage: (3 GM 1ST DOSE/4.5 GM SECOND DOSE), ORAL (TITRATING DOSE), ORAL (4.5 GM 1ST/4.5 GM 2ND/3GM 3RD DOSE)
     Route: 048
     Dates: start: 20120123, end: 20120701
  5. XYREM [Suspect]
     Indication: SLEEP DISORDER
     Dosage: (3 GM 1ST DOSE/4.5 GM SECOND DOSE), ORAL (TITRATING DOSE), ORAL (4.5 GM 1ST/4.5 GM 2ND/3GM 3RD DOSE)
     Route: 048
     Dates: start: 20120101, end: 20120101
  6. XYREM [Suspect]
     Indication: SLEEP DISORDER
     Dosage: (3 GM 1ST DOSE/4.5 GM SECOND DOSE), ORAL (TITRATING DOSE), ORAL (4.5 GM 1ST/4.5 GM 2ND/3GM 3RD DOSE)
     Route: 048
     Dates: start: 20120416, end: 20120601

REACTIONS (24)
  - ABNORMAL DREAMS [None]
  - HEAD INJURY [None]
  - FRUSTRATION [None]
  - UPPER RESPIRATORY TRACT CONGESTION [None]
  - LIMB OPERATION [None]
  - DISORIENTATION [None]
  - ABNORMAL SLEEP-RELATED EVENT [None]
  - HANGOVER [None]
  - SUICIDAL IDEATION [None]
  - INTENTIONAL DRUG MISUSE [None]
  - MEMORY IMPAIRMENT [None]
  - FOOT FRACTURE [None]
  - FEELING ABNORMAL [None]
  - FALL [None]
  - LOWER LIMB FRACTURE [None]
  - DRUG DOSE OMISSION [None]
  - DEPRESSION [None]
  - NASOPHARYNGITIS [None]
  - COUGH [None]
  - CRYING [None]
  - BALANCE DISORDER [None]
  - INSOMNIA [None]
  - CONDITION AGGRAVATED [None]
  - BURNS FOURTH DEGREE [None]
